FAERS Safety Report 15264627 (Version 1)
Quarter: 2018Q3

REPORT INFORMATION
  Report Type: Spontaneous
  Country: CN (occurrence: CN)
  Receive Date: 20180810
  Receipt Date: 20180810
  Transmission Date: 20181010
  Serious: Yes (Other)
  Sender: FDA-Public Use
  Company Number: CN-ARALEZ PHARMACEUTICALS R+D INC.-2018-ARA-002014

PATIENT
  Sex: Male

DRUGS (4)
  1. DESLANOSIDE [Suspect]
     Active Substance: DESLANOSIDE
     Indication: CARDIAC DISORDER
     Dosage: 0.1 MG, BID
     Route: 042
     Dates: start: 20180502, end: 20180508
  2. METOPROLOL SUCCINATE. [Suspect]
     Active Substance: METOPROLOL SUCCINATE
     Indication: MYOCARDIAL ISCHAEMIA
  3. METOPROLOL SUCCINATE. [Suspect]
     Active Substance: METOPROLOL SUCCINATE
     Indication: HEART RATE ABNORMAL
     Dosage: 47.5 MG, QD
     Route: 048
     Dates: start: 20180402, end: 20180516
  4. DIGOXIN. [Suspect]
     Active Substance: DIGOXIN
     Indication: PRODUCT USED FOR UNKNOWN INDICATION
     Dosage: 0.25 MG, QD
     Route: 048
     Dates: start: 20180509, end: 20180511

REACTIONS (2)
  - Atrioventricular block first degree [Unknown]
  - Bradycardia [Unknown]
